FAERS Safety Report 19435341 (Version 1)
Quarter: 2021Q2

REPORT INFORMATION
  Report Type: Spontaneous
  Country: CN (occurrence: CN)
  Receive Date: 20210617
  Receipt Date: 20210617
  Transmission Date: 20210717
  Serious: Yes (Congenital Anomaly, Other)
  Sender: FDA-Public Use
  Company Number: CN-SA-2021SA193640

PATIENT

DRUGS (2)
  1. ENOXAPARIN SODIUM. [Suspect]
     Active Substance: ENOXAPARIN SODIUM
     Dosage: UNK
     Route: 064
     Dates: start: 20191224, end: 20200112
  2. ASTRAGALUS MEMBRANACEUS [Suspect]
     Active Substance: ASTRAGALUS PROPINQUUS ROOT\HERBALS
     Dosage: UNK
     Route: 064
     Dates: start: 20191224, end: 20200131

REACTIONS (2)
  - Foetal exposure during pregnancy [Recovered/Resolved]
  - Foetal growth restriction [Recovered/Resolved]
